FAERS Safety Report 7439695-7 (Version None)
Quarter: 2011Q2

REPORT INFORMATION
  Report Type: 
  Country: None (occurrence: None)
  Receive Date: 20110427
  Receipt Date: 20110414
  Transmission Date: 20111010
  Serious: Yes (Hospitalization, Other)
  Sender: FDA-Public Use
  Company Number: PHHY2010JP82048

PATIENT
  Sex: Male
  Weight: 54 kg

DRUGS (2)
  1. CO-DIOVAN [Suspect]
     Indication: HYPERTENSION
     Dosage: 1 DF DAILY
     Route: 048
     Dates: start: 20100812, end: 20101126
  2. DIOVAN [Concomitant]
     Indication: HYPERTENSION
     Dosage: UNK
     Route: 048
     Dates: start: 20080519, end: 20100811

REACTIONS (11)
  - BLOOD ALKALINE PHOSPHATASE INCREASED [None]
  - COUGH [None]
  - ARTHRALGIA [None]
  - GAMMA-GLUTAMYLTRANSFERASE INCREASED [None]
  - INTERSTITIAL LUNG DISEASE [None]
  - PNEUMONIA [None]
  - ALVEOLITIS ALLERGIC [None]
  - DYSPNOEA [None]
  - BRONCHIAL WALL THICKENING [None]
  - PNEUMOTHORAX [None]
  - BLOOD LACTATE DEHYDROGENASE INCREASED [None]
